FAERS Safety Report 19834755 (Version 1)
Quarter: 2021Q3

REPORT INFORMATION
  Report Type: Report from Study
  Country: US (occurrence: US)
  Receive Date: 20210914
  Receipt Date: 20210914
  Transmission Date: 20211014
  Serious: Yes (Other)
  Sender: FDA-Public Use
  Company Number: NVSC2021US199678

PATIENT
  Sex: Male

DRUGS (2)
  1. TAFINLAR [Suspect]
     Active Substance: DABRAFENIB MESYLATE
     Indication: PRODUCT USED FOR UNKNOWN INDICATION
     Dosage: 75 MG, BID
     Route: 048
  2. MEKINIST [Suspect]
     Active Substance: TRAMETINIB DIMETHYL SULFOXIDE
     Indication: PRODUCT USED FOR UNKNOWN INDICATION
     Dosage: UNK
     Route: 065

REACTIONS (7)
  - Acne [Recovering/Resolving]
  - Thyroid cancer [Recovering/Resolving]
  - Hypertension [Recovering/Resolving]
  - Pruritus [Recovering/Resolving]
  - Chills [Recovering/Resolving]
  - Rash [Recovering/Resolving]
  - Internal haemorrhage [Recovering/Resolving]
